FAERS Safety Report 21927427 (Version 1)
Quarter: 2023Q1

REPORT INFORMATION
  Report Type: Spontaneous
  Country: US (occurrence: None)
  Receive Date: 20230130
  Receipt Date: 20230130
  Transmission Date: 20230417
  Serious: Yes (unspecified)
  Sender: FDA-Public Use
  Company Number: None

PATIENT
  Age: 46 Year
  Sex: Female

DRUGS (9)
  1. TOPAMAX [Suspect]
     Active Substance: TOPIRAMATE
  2. LEVOTHYROXINE [Suspect]
     Active Substance: LEVOTHYROXINE
  3. METFORMIN [Suspect]
     Active Substance: METFORMIN HYDROCHLORIDE
  4. LISINOPRIL [Suspect]
     Active Substance: LISINOPRIL
  5. TOPAMAX [Concomitant]
     Active Substance: TOPIRAMATE
  6. LEVOTHYROXINE [Concomitant]
     Active Substance: LEVOTHYROXINE
  7. METFORMIN [Concomitant]
     Active Substance: METFORMIN HYDROCHLORIDE
  8. LISINOPRIL [Concomitant]
     Active Substance: LISINOPRIL
  9. ^CHEMOTHERAPY DRUGS^ [Concomitant]

REACTIONS (9)
  - Product packaging issue [None]
  - Product design issue [None]
  - Accidental overdose [None]
  - Palpitations [None]
  - Hyperhidrosis [None]
  - Energy increased [None]
  - Blood glucose decreased [None]
  - Device malfunction [None]
  - Product quality issue [None]

NARRATIVE: CASE EVENT DATE: 20230121
